FAERS Safety Report 7722312-6 (Version None)
Quarter: 2011Q3

REPORT INFORMATION
  Report Type: 
  Country: None (occurrence: None)
  Receive Date: 20110831
  Receipt Date: 20110826
  Transmission Date: 20111222
  Serious: Yes (Death, Other)
  Sender: FDA-Public Use
  Company Number: FR-ABBOTT-11P-056-0849749-00

PATIENT
  Age: 46 Year
  Sex: Male

DRUGS (1)
  1. DEPAKOTE [Suspect]
     Indication: MANIA
     Dosage: GATRO-RESISTANT
     Route: 048
     Dates: start: 20110201, end: 20110301

REACTIONS (2)
  - THROMBOCYTOPENIA [None]
  - DEATH [None]
